FAERS Safety Report 4973938-4 (Version None)
Quarter: 2006Q2

REPORT INFORMATION
  Report Type: 
  Country: None (occurrence: None)
  Receive Date: 20060410
  Receipt Date: 20060403
  Transmission Date: 20061013
  Serious: Yes (Death)
  Sender: FDA-Public Use
  Company Number: 2006046400

PATIENT
  Sex: Female

DRUGS (1)
  1. BEXTRA [Suspect]
     Indication: ILL-DEFINED DISORDER
     Dates: start: 20021001, end: 20040301

REACTIONS (3)
  - MYOCARDIAL INFARCTION [None]
  - THROMBOSIS [None]
  - VASCULAR INJURY [None]
